FAERS Safety Report 10513595 (Version 2)
Quarter: 2015Q2

REPORT INFORMATION
  Report Type: Report from Study
  Country: TR (occurrence: TR)
  Receive Date: 20141013
  Receipt Date: 20150423
  Transmission Date: 20150821
  Serious: Yes (Hospitalization, Congenital Anomaly, Other)
  Sender: FDA-Public Use
  Company Number: TR-NOVOPROD-424834

PATIENT
  Sex: Female
  Weight: 2 kg

DRUGS (6)
  1. INSULIN DETEMIR FLEXPEN [Suspect]
     Active Substance: INSULIN DETEMIR
     Indication: TYPE 2 DIABETES MELLITUS
     Dosage: 30 U, QD
     Route: 064
     Dates: start: 20140814, end: 20140822
  2. INSULIN DETEMIR FLEXPEN [Suspect]
     Active Substance: INSULIN DETEMIR
     Dosage: 30 U, QD
     Route: 063
  3. NOVORAPID [Suspect]
     Active Substance: INSULIN ASPART
     Indication: TYPE 2 DIABETES MELLITUS
     Dosage: 58 U, QD
     Route: 064
     Dates: start: 20140814, end: 20140822
  4. ALFAMET [Concomitant]
     Active Substance: METHYLDOPA
     Indication: HYPERTENSION
     Dosage: 1X3
     Route: 064
     Dates: start: 201407, end: 20140822
  5. NOVORAPID [Suspect]
     Active Substance: INSULIN ASPART
     Dosage: 58 U, QD
     Route: 063
     Dates: end: 20140825
  6. ALFAMET [Concomitant]
     Active Substance: METHYLDOPA
     Dosage: 1X3
     Route: 063

REACTIONS (6)
  - Congenital cystic lung [Not Recovered/Not Resolved]
  - Neonatal infection [Not Recovered/Not Resolved]
  - Foetal exposure during pregnancy [Recovered/Resolved]
  - Neonatal respiratory distress syndrome [Recovered/Resolved]
  - Jaundice neonatal [Recovered/Resolved]
  - Premature baby [Unknown]

NARRATIVE: CASE EVENT DATE: 201408
